FAERS Safety Report 5535655-1 (Version None)
Quarter: 2007Q4

REPORT INFORMATION
  Report Type: 
  Country: None (occurrence: None)
  Receive Date: 20071206
  Receipt Date: 20070208
  Transmission Date: 20080405
  Serious: Yes (Hospitalization, Other)
  Sender: FDA-Public Use
  Company Number: US-AMGEN-STX205644

PATIENT
  Sex: Female

DRUGS (13)
  1. ENBREL [Suspect]
     Indication: RHEUMATOID ARTHRITIS
     Route: 058
     Dates: start: 20011001, end: 20060618
  2. ENBREL [Suspect]
     Indication: ANKYLOSING SPONDYLITIS
  3. MOBIC [Concomitant]
  4. PREMARIN [Concomitant]
  5. PREDNISONE TAB [Concomitant]
     Dates: start: 20011001
  6. CALCIUM [Concomitant]
     Dates: start: 20050225
  7. AMBIEN [Concomitant]
     Dates: start: 20061019
  8. XANAX [Concomitant]
     Dates: start: 20061030
  9. FOSAMAX [Concomitant]
     Dates: start: 20050225, end: 20060907
  10. LISINOPRIL [Concomitant]
     Dates: start: 20040415, end: 20061019
  11. METHOTREXATE [Concomitant]
     Dates: start: 20020228, end: 20050126
  12. VIOXX [Concomitant]
     Dates: start: 20020228, end: 20041028
  13. FOLIC ACID [Concomitant]
     Dates: start: 20020228, end: 20050126

REACTIONS (10)
  - ABDOMINAL PAIN [None]
  - ANKYLOSING SPONDYLITIS [None]
  - ARTHRALGIA [None]
  - BREAST CANCER [None]
  - CLOSTRIDIAL INFECTION [None]
  - FATIGUE [None]
  - LOCAL SWELLING [None]
  - OEDEMA PERIPHERAL [None]
  - OSTEOARTHRITIS [None]
  - REITER'S SYNDROME [None]
